FAERS Safety Report 24605816 (Version 1)
Quarter: 2024Q4

REPORT INFORMATION
  Report Type: Spontaneous
  Country: DE (occurrence: DE)
  Receive Date: 20241111
  Receipt Date: 20241111
  Transmission Date: 20250114
  Serious: Yes (Other)
  Sender: JOHNSON AND JOHNSON
  Company Number: DE-BAYER-2024A159357

PATIENT
  Age: 80 Year
  Sex: Female
  Weight: 51 kg

DRUGS (2)
  1. XARELTO [Suspect]
     Active Substance: RIVAROXABAN
     Indication: Atrial fibrillation
     Dosage: 20 MG
     Route: 048
     Dates: start: 2020
  2. PERNIL [Concomitant]

REACTIONS (7)
  - Hypertension [Unknown]
  - Headache [Unknown]
  - Dizziness [Unknown]
  - Contusion [Unknown]
  - Nail bed bleeding [Unknown]
  - Fatigue [Unknown]
  - Fall [Unknown]
